FAERS Safety Report 25221661 (Version 1)
Quarter: 2025Q2

REPORT INFORMATION
  Report Type: Spontaneous
  Country: US (occurrence: None)
  Receive Date: 20250421
  Receipt Date: 20250421
  Transmission Date: 20250716
  Serious: Yes (Other)
  Sender: FDA-CTU
  Company Number: None

PATIENT
  Age: 42 Year
  Sex: Male
  Weight: 83.25 kg

DRUGS (3)
  1. LEVOFLOXACIN [Suspect]
     Active Substance: LEVOFLOXACIN
     Indication: Bacterial prostatitis
     Dates: start: 20250320, end: 20250326
  2. DOXYCYCLINE [Concomitant]
     Active Substance: DOXYCYCLINE
  3. FOSFOMYCIN [Concomitant]
     Active Substance: FOSFOMYCIN

REACTIONS (8)
  - Neuropathy peripheral [None]
  - Tendonitis [None]
  - Pain in extremity [None]
  - Headache [None]
  - Arthralgia [None]
  - Arthralgia [None]
  - Arthralgia [None]
  - Tendon pain [None]

NARRATIVE: CASE EVENT DATE: 20250320
